FAERS Safety Report 24040241 (Version 1)
Quarter: 2024Q3

REPORT INFORMATION
  Report Type: Spontaneous
  Country: US (occurrence: US)
  Receive Date: 20240702
  Receipt Date: 20240702
  Transmission Date: 20241017
  Serious: Yes (Hospitalization, Other)
  Sender: OTSUKA
  Company Number: US-OTSUKA-2024_018057

PATIENT
  Age: 22 Month
  Sex: Female

DRUGS (1)
  1. BREXPIPRAZOLE [Suspect]
     Active Substance: BREXPIPRAZOLE
     Indication: Product used for unknown indication
     Dosage: 1 MG, 27 DOSAGE FORM
     Route: 065

REACTIONS (5)
  - Tachycardia [Recovering/Resolving]
  - Agitation [Recovering/Resolving]
  - Dystonia [Recovering/Resolving]
  - Somnolence [Recovering/Resolving]
  - Accidental exposure to product [Unknown]
